FAERS Safety Report 8997556 (Version 1)
Quarter: 2013Q1

REPORT INFORMATION
  Report Type: Spontaneous
  Country: US (occurrence: US)
  Receive Date: 20130104
  Receipt Date: 20130104
  Transmission Date: 20140127
  Serious: Yes (Other)
  Sender: FDA-Public Use
  Company Number: US-MPIJNJ-2013-00111

PATIENT
  Sex: 0

DRUGS (12)
  1. VELCADE [Suspect]
     Indication: PRODUCT USED FOR UNKNOWN INDICATION
     Dosage: UNK
     Dates: start: 20060418, end: 20061107
  2. PREDNISONE [Suspect]
     Indication: PRODUCT USED FOR UNKNOWN INDICATION
     Dosage: UNK
     Dates: start: 20060418, end: 20061107
  3. VITAMIN D /00107901/ [Concomitant]
     Indication: MEDICAL DIET
     Dosage: UNK
     Dates: start: 200907, end: 20090805
  4. SYNTHROID [Concomitant]
     Indication: HYPOTHYROIDISM
     Dosage: UNK
     Dates: start: 200907
  5. PROZAC                             /00724401/ [Concomitant]
     Indication: DEPRESSION
     Dosage: UNK
     Dates: start: 2007
  6. LOTREL                             /01289101/ [Concomitant]
     Indication: HYPERTENSION
     Dosage: UNK
     Dates: start: 2004
  7. TYLENOL /00020001/ [Concomitant]
     Indication: OROPHARYNGEAL PAIN
     Dosage: UNK, PRN
     Dates: start: 20100104, end: 20100108
  8. TYLENOL /00020001/ [Concomitant]
     Indication: PYREXIA
  9. ROBITUSSIN                         /00048001/ [Concomitant]
     Indication: COUGH
     Dosage: UNK
     Dates: start: 20100104, end: 20100108
  10. BENADRYL                           /00000402/ [Concomitant]
     Indication: PRODUCT USED FOR UNKNOWN INDICATION
     Dosage: UNK
     Dates: start: 20100421, end: 20100426
  11. INFLUENZA VACCINE [Concomitant]
     Indication: PROPHYLAXIS
     Dosage: UNK
     Dates: start: 20091202, end: 20091202
  12. INFLUENZA [Concomitant]
     Indication: PROPHYLAXIS

REACTIONS (2)
  - Leukocytosis [Unknown]
  - Thrombocytopenia [Unknown]
